FAERS Safety Report 9978671 (Version 1)
Quarter: 2014Q1

REPORT INFORMATION
  Report Type: Spontaneous
  Country: US (occurrence: US)
  Receive Date: 20140306
  Receipt Date: 20140306
  Transmission Date: 20141002
  Serious: Yes (Other)
  Sender: FDA-Public Use
  Company Number: US-ABBVIE-13P-163-1171773-00

PATIENT
  Age: 70 Year
  Sex: Female
  Weight: 52.21 kg

DRUGS (1)
  1. HUMIRA [Suspect]
     Indication: CROHN^S DISEASE
     Route: 058
     Dates: start: 200801, end: 201110

REACTIONS (2)
  - Lymph node tuberculosis [Recovered/Resolved]
  - Lymphadenopathy [Recovered/Resolved]
